FAERS Safety Report 4665881-5 (Version None)
Quarter: 2005Q2

REPORT INFORMATION
  Report Type: 
  Country: None (occurrence: None)
  Receive Date: 20050519
  Receipt Date: 20041216
  Transmission Date: 20051028
  Serious: Yes (Life-Threatening, Hospitalization)
  Sender: FDA-Public Use
  Company Number: GBWYE285816DEC04

PATIENT
  Sex: Male

DRUGS (6)
  1. ENBREL [Suspect]
     Indication: DRUG USE FOR UNKNOWN INDICATION
     Dosage: UNKNOWN
     Route: 058
  2. PREDNISOLONE [Concomitant]
  3. DICLOFENAC SODIUM [Concomitant]
  4. NEXIUM [Concomitant]
  5. PROTHIADEN [Concomitant]
  6. ZESTRIL [Concomitant]

REACTIONS (2)
  - ARTHRITIS INFECTIVE [None]
  - STAPHYLOCOCCAL SEPSIS [None]
